FAERS Safety Report 9745946 (Version 2)
Quarter: 2013Q4

REPORT INFORMATION
  Report Type: Spontaneous
  Country: PR (occurrence: PR)
  Receive Date: 20131211
  Receipt Date: 20131211
  Transmission Date: 20140711
  Serious: No
  Sender: FDA-Public Use
  Company Number: PR-BAXTER-2013BAX045337

PATIENT
  Age: 15 Day
  Sex: Male
  Weight: 2.59 kg

DRUGS (7)
  1. 70% DEXTROSE INJECTION USP [Suspect]
     Indication: PARENTERAL NUTRITION
     Route: 042
  2. 10% PREMASOL [Suspect]
     Indication: PARENTERAL NUTRITION
     Route: 042
  3. STERILE WATER FOR INJECTION [Suspect]
     Indication: PARENTERAL NUTRITION
     Route: 042
  4. CALCIUM GLUCONATE [Suspect]
     Indication: PARENTERAL NUTRITION
     Route: 042
  5. POTASSIUM CHLORIDE [Suspect]
     Indication: PARENTERAL NUTRITION
     Route: 042
  6. SODIUM CHLORIDE [Suspect]
     Indication: PARENTERAL NUTRITION
     Route: 042
  7. MAGNESIUM SULFATE [Suspect]
     Indication: PARENTERAL NUTRITION
     Route: 042

REACTIONS (1)
  - Hypercalcaemia [Unknown]
